FAERS Safety Report 5941684-6 (Version None)
Quarter: 2008Q4

REPORT INFORMATION
  Report Type: 
  Country: None (occurrence: None)
  Receive Date: 20081031
  Receipt Date: 20081020
  Transmission Date: 20090506
  Serious: Yes (Other)
  Sender: FDA-Public Use
  Company Number: DSA_32563_2008

PATIENT
  Sex: Female

DRUGS (2)
  1. ATIVAN [Suspect]
     Indication: DEPRESSED MOOD
     Dosage: (0.5 MG PRN ORAL)
     Route: 048
     Dates: start: 20081001, end: 20081014
  2. ZOLOFT [Concomitant]

REACTIONS (5)
  - COUGH [None]
  - DYSARTHRIA [None]
  - EMOTIONAL DISORDER [None]
  - PULMONARY HAEMORRHAGE [None]
  - SUICIDAL IDEATION [None]
